FAERS Safety Report 18968968 (Version 1)
Quarter: 2021Q1

REPORT INFORMATION
  Report Type: Spontaneous
  Country: US (occurrence: US)
  Receive Date: 20210304
  Receipt Date: 20210304
  Transmission Date: 20210420
  Serious: No
  Sender: FDA-Public Use
  Company Number: US-VYERA PHARMACEUTICALS, LLC-2020VYE00018

PATIENT
  Age: 11 Year
  Sex: Female

DRUGS (10)
  1. DARAPRIM [Suspect]
     Active Substance: PYRIMETHAMINE
     Dosage: UNK
  2. LEUCOVORIN. [Suspect]
     Active Substance: LEUCOVORIN
     Dosage: UNK
  3. PREDNISONE. [Suspect]
     Active Substance: PREDNISONE
     Dosage: UNK
  4. LEUCOVORIN. [Suspect]
     Active Substance: LEUCOVORIN
     Dosage: UNK
  5. PREDNISONE. [Suspect]
     Active Substance: PREDNISONE
     Dosage: UNK
     Dates: start: 20200307
  6. DARAPRIM [Suspect]
     Active Substance: PYRIMETHAMINE
     Dosage: UNK
  7. DARAPRIM [Suspect]
     Active Substance: PYRIMETHAMINE
     Dosage: UNK
  8. SULFADIAZINE. [Suspect]
     Active Substance: SULFADIAZINE
     Dosage: UNK
  9. PREDNISONE. [Suspect]
     Active Substance: PREDNISONE
     Dosage: 30 MG ^WEENED TO 20 MG^
  10. PREDNISONE. [Suspect]
     Active Substance: PREDNISONE
     Dosage: 20 MG

REACTIONS (6)
  - Lymphadenopathy [Unknown]
  - Flushing [Unknown]
  - Oral mucosal eruption [Recovered/Resolved]
  - Coronavirus infection [Not Recovered/Not Resolved]
  - Petechiae [Not Recovered/Not Resolved]
  - Rash [Recovered/Resolved]

NARRATIVE: CASE EVENT DATE: 20200305
